FAERS Safety Report 23725283 (Version 1)
Quarter: 2024Q2

REPORT INFORMATION
  Report Type: Spontaneous
  Country: FR (occurrence: FR)
  Receive Date: 20240410
  Receipt Date: 20240410
  Transmission Date: 20240716
  Serious: Yes (Life-Threatening, Other)
  Sender: FDA-Public Use
  Company Number: FR-AFSSAPS-RN2024000334

PATIENT
  Age: 63 Year
  Sex: Male
  Weight: 80 kg

DRUGS (2)
  1. AMOXICILLIN [Suspect]
     Active Substance: AMOXICILLIN
     Indication: Dental care
     Dosage: 1 DOSAGE FORM (1 SINGLE SOCKET)
     Route: 048
     Dates: start: 20231214, end: 20231214
  2. IBUPROFEN [Concomitant]
     Active Substance: IBUPROFEN
     Indication: Dental care
     Dosage: 1 DOSAGE FORM (1 SINGLE SOCKET)
     Route: 048
     Dates: start: 20231214, end: 20231214

REACTIONS (3)
  - Anaphylactic reaction [Recovered/Resolved]
  - Documented hypersensitivity to administered product [Recovered/Resolved]
  - Wrong drug [Recovered/Resolved]

NARRATIVE: CASE EVENT DATE: 20231214
